FAERS Safety Report 4826790-1 (Version None)
Quarter: 2005Q4

REPORT INFORMATION
  Report Type: 
  Country: None (occurrence: None)
  Receive Date: 20051111
  Receipt Date: 20051111
  Transmission Date: 20060501
  Serious: Yes (Death, Hospitalization)
  Sender: FDA-Public Use
  Company Number: None

PATIENT
  Sex: Male
  Weight: 72.2 kg

DRUGS (7)
  1. CYTARABINE [Suspect]
     Indication: ACUTE LYMPHOCYTIC LEUKAEMIA
     Dosage: SEE IMAGE
     Dates: start: 20050406, end: 20050406
  2. CYTARABINE [Suspect]
     Indication: ACUTE LYMPHOCYTIC LEUKAEMIA
     Dosage: SEE IMAGE
     Dates: start: 20050408
  3. DAUNORUBICIN [Suspect]
     Dosage: SEE IMAGE
     Dates: start: 20050408, end: 20050422
  4. DEXAMETHASONE [Suspect]
     Dosage: SEE IMAGE
     Dates: start: 20050408, end: 20050421
  5. METHOTREXATE [Suspect]
     Dosage: SEE IMAGE
     Dates: start: 20050414, end: 20050414
  6. PEG-L SPARAGINASE [Suspect]
     Dosage: SEE IMAGE
     Dates: start: 20050411, end: 20050411
  7. VINCRISTINE SULFATE [Suspect]
     Dosage: SEE IMAGE
     Dates: start: 20050408, end: 20050422

REACTIONS (15)
  - ABDOMINAL DISTENSION [None]
  - ACUTE RESPIRATORY DISTRESS SYNDROME [None]
  - CARDIOMYOPATHY [None]
  - FLUID OVERLOAD [None]
  - FOOD INTOLERANCE [None]
  - GASTROINTESTINAL DISORDER [None]
  - HAEMODIALYSIS [None]
  - ILEUS [None]
  - LIVER FUNCTION TEST ABNORMAL [None]
  - MULTI-ORGAN DISORDER [None]
  - PULMONARY OEDEMA [None]
  - RENAL FAILURE ACUTE [None]
  - RESPIRATORY FAILURE [None]
  - SEPSIS [None]
  - SYSTEMIC INFLAMMATORY RESPONSE SYNDROME [None]
